FAERS Safety Report 14485468 (Version 1)
Quarter: 2018Q1

REPORT INFORMATION
  Report Type: Spontaneous
  Country: JP (occurrence: JP)
  Receive Date: 20180205
  Receipt Date: 20180205
  Transmission Date: 20180509
  Serious: Yes (Other)
  Sender: FDA-Public Use
  Company Number: JP-TAKEDA-2017TUS021797

PATIENT
  Age: 70 Year
  Sex: Male
  Weight: 45 kg

DRUGS (6)
  1. FEBURIC [Interacting]
     Active Substance: FEBUXOSTAT
     Dosage: 20 MG, QD
     Route: 048
     Dates: start: 20171002, end: 20171002
  2. CARVEDILOL. [Interacting]
     Active Substance: CARVEDILOL
     Indication: ANGINA UNSTABLE
     Dosage: 5 MG, BID
     Route: 048
     Dates: start: 20060629
  3. BAYASPIRIN [Concomitant]
     Active Substance: ASPIRIN
     Indication: ANGINA UNSTABLE
     Dosage: 100 MG, QD
     Route: 048
     Dates: start: 20060629
  4. FEBURIC [Interacting]
     Active Substance: FEBUXOSTAT
     Dosage: 10 MG, QD
     Route: 048
     Dates: start: 20171003
  5. FEBURIC [Suspect]
     Active Substance: FEBUXOSTAT
     Indication: HYPERURICAEMIA
     Dosage: 10 MG, QD
     Route: 048
     Dates: end: 20171001
  6. GASTER [Concomitant]
     Active Substance: FAMOTIDINE
     Indication: GASTROINTESTINAL HAEMORRHAGE
     Dosage: 10 MG, QD
     Route: 048
     Dates: start: 20060629

REACTIONS (2)
  - Sinus tachycardia [Recovered/Resolved]
  - Drug interaction [Recovered/Resolved]

NARRATIVE: CASE EVENT DATE: 20171002
